FAERS Safety Report 21390576 (Version 1)
Quarter: 2022Q3

REPORT INFORMATION
  Report Type: Spontaneous
  Country: US (occurrence: US)
  Receive Date: 20220929
  Receipt Date: 20220929
  Transmission Date: 20221026
  Serious: No
  Sender: FDA-Public Use
  Company Number: US-Indivior Limited-INDV-134954-2022

PATIENT
  Sex: Male

DRUGS (2)
  1. PERSERIS [Suspect]
     Active Substance: RISPERIDONE
     Indication: Schizophrenia
     Dosage: 120 MILLIGRAM, QMO
     Route: 058
  2. PERSERIS [Suspect]
     Active Substance: RISPERIDONE
     Dosage: 120 MILLIGRAM, Q2MO
     Route: 065

REACTIONS (3)
  - Inappropriate schedule of product administration [Not Recovered/Not Resolved]
  - Schizophrenia [Recovering/Resolving]
  - Therapeutic response shortened [Unknown]
